FAERS Safety Report 5366880-0 (Version None)
Quarter: 2007Q2

REPORT INFORMATION
  Report Type: 
  Country: None (occurrence: None)
  Receive Date: 20070622
  Receipt Date: 20061229
  Transmission Date: 20071010
  Serious: No
  Sender: FDA-Public Use
  Company Number: US-ASTRAZENECA-2006UW28684

PATIENT
  Age: 67 Year
  Sex: Female
  Weight: 63.5 kg

DRUGS (4)
  1. RHINOCORT [Suspect]
     Indication: COUGH
     Route: 045
     Dates: start: 20061228
  2. RHINOCORT [Suspect]
     Indication: POSTNASAL DRIP
     Route: 045
     Dates: start: 20061228
  3. CLARITHROMYCIN [Concomitant]
  4. BENZONATATE [Concomitant]

REACTIONS (1)
  - DIZZINESS [None]
